FAERS Safety Report 6454750-6 (Version None)
Quarter: 2009Q4

REPORT INFORMATION
  Report Type: 
  Country: None (occurrence: None)
  Receive Date: 20091124
  Receipt Date: 20091118
  Transmission Date: 20100525
  Serious: Yes (Other)
  Sender: FDA-Public Use
  Company Number: US-WATSON-2009-07334

PATIENT
  Sex: Male
  Weight: 52.2 kg

DRUGS (5)
  1. ANDRODERM [Suspect]
     Indication: BLOOD TESTOSTERONE DECREASED
     Dosage: 1 PATCH, DAILY
     Route: 062
     Dates: start: 20090803
  2. ANDRODERM [Suspect]
     Dosage: 1 PATCH, DAILY
     Route: 062
     Dates: start: 20081105, end: 20090802
  3. ANDROGEL [Suspect]
     Indication: BLOOD TESTOSTERONE DECREASED
     Dosage: 1 APPLICATION, DAILY
     Route: 061
     Dates: start: 20050101, end: 20081104
  4. SINGULAIR [Concomitant]
     Indication: DRUG USE FOR UNKNOWN INDICATION
     Dosage: UNK
     Route: 065
  5. ALLEGRA [Concomitant]
     Indication: DRUG USE FOR UNKNOWN INDICATION
     Dosage: UNK
     Route: 065

REACTIONS (15)
  - ACCIDENTAL EXPOSURE [None]
  - ACNE [None]
  - BLOOD TESTOSTERONE INCREASED [None]
  - BONE DEVELOPMENT ABNORMAL [None]
  - CAFE AU LAIT SPOTS [None]
  - EAR INFECTION [None]
  - GROWTH RETARDATION [None]
  - HAIR GROWTH ABNORMAL [None]
  - INCREASED APPETITE [None]
  - PRECOCIOUS PUBERTY [None]
  - PYREXIA [None]
  - RESPIRATORY TRACT INFECTION [None]
  - SKIN ODOUR ABNORMAL [None]
  - THIRST [None]
  - VOMITING [None]
